FAERS Safety Report 4583811-1 (Version None)
Quarter: 2005Q1

REPORT INFORMATION
  Report Type: 
  Country: None (occurrence: None)
  Receive Date: 20050216
  Receipt Date: 20050211
  Transmission Date: 20050727
  Serious: Yes (Death)
  Sender: FDA-Public Use
  Company Number: PHBS2005GR02177

PATIENT
  Age: 15 Year
  Sex: Male

DRUGS (1)
  1. RITALIN [Suspect]
     Indication: SPEECH DISORDER
     Dosage: 10 MG/D
     Route: 048

REACTIONS (2)
  - DROWNING [None]
  - LOSS OF CONSCIOUSNESS [None]
